FAERS Safety Report 8941830 (Version 1)
Quarter: 2012Q4

REPORT INFORMATION
  Report Type: 
  Country: DE (occurrence: DE)
  Receive Date: 20121203
  Receipt Date: 20121203
  Transmission Date: 20130627
  Serious: Yes (Other)
  Sender: FDA-Public Use
  Company Number: DE-ROCHE-1142304

PATIENT
  Sex: Female

DRUGS (6)
  1. HERCEPTIN [Suspect]
     Indication: BREAST CANCER
     Route: 042
     Dates: start: 20120614
  2. HERCEPTIN [Suspect]
     Route: 042
     Dates: start: 20120614
  3. HERCEPTIN [Suspect]
     Route: 042
     Dates: start: 20120614
  4. HERCEPTIN [Suspect]
     Route: 042
     Dates: start: 20120614
  5. HERCEPTIN [Suspect]
     Route: 042
     Dates: start: 20120614
  6. HERCEPTIN [Suspect]
     Route: 042
     Dates: start: 20120614

REACTIONS (6)
  - Subclavian vein thrombosis [Recovering/Resolving]
  - Cardiomyopathy [Recovering/Resolving]
  - Hepatotoxicity [Recovering/Resolving]
  - Bone marrow toxicity [Recovering/Resolving]
  - Leukopenia [Unknown]
  - Thrombocytopenia [Unknown]
